FAERS Safety Report 6132706-0 (Version None)
Quarter: 2009Q1

REPORT INFORMATION
  Report Type: 
  Country: None (occurrence: None)
  Receive Date: 20090324
  Receipt Date: 20090324
  Transmission Date: 20090719
  Serious: Yes (Death)
  Sender: FDA-Public Use
  Company Number: None

PATIENT
  Age: 60 Year
  Sex: Female
  Weight: 57 kg

DRUGS (3)
  1. INTEGRILIN [Suspect]
     Indication: CATHETERISATION CARDIAC
     Dosage: 5ML BOLUS X 2 9 MIN APART IV
     Route: 042
     Dates: start: 20090308
  2. INTEGRILIN [Suspect]
     Dosage: 9.1ML 0129 TO 0221 IV INFUSION
     Route: 042
  3. HEPARIN [Concomitant]

REACTIONS (1)
  - PLATELET COUNT DECREASED [None]
